FAERS Safety Report 6077408-4 (Version None)
Quarter: 2009Q1

REPORT INFORMATION
  Report Type: 
  Country: None (occurrence: None)
  Receive Date: 20090213
  Receipt Date: 20090206
  Transmission Date: 20090719
  Serious: Yes (Other)
  Sender: FDA-Public Use
  Company Number: BR-JNJFOC-20090202227

PATIENT
  Age: 21 Year
  Sex: Male
  Weight: 66 kg

DRUGS (1)
  1. HALOPERIDOL DECANOATE [Suspect]
     Indication: DRUG LEVEL INCREASED
     Dosage: ONE VIAL (1ML)
     Route: 030

REACTIONS (5)
  - AGITATION [None]
  - ANOREXIA [None]
  - GAZE PALSY [None]
  - HYPOKINESIA [None]
  - SALIVARY HYPERSECRETION [None]
